FAERS Safety Report 5692949-7 (Version None)
Quarter: 2008Q2

REPORT INFORMATION
  Report Type: 
  Country: None (occurrence: None)
  Receive Date: 20080403
  Receipt Date: 20080331
  Transmission Date: 20081010
  Serious: Yes (Disabling)
  Sender: FDA-Public Use
  Company Number: JP-SP-2008-00463

PATIENT
  Age: 85 Year
  Sex: Male

DRUGS (5)
  1. IMMUCYST [Suspect]
     Indication: BLADDER CANCER
     Route: 043
     Dates: start: 20060110, end: 20060306
  2. FLEROXACIN [Concomitant]
     Dates: start: 20060118, end: 20060124
  3. CIPROFLOXACIN HYDROCHLORIDE [Concomitant]
     Dates: start: 20060125, end: 20060131
  4. LOXOPROFEN SODIUM [Concomitant]
     Dates: start: 20060110
  5. DICLOFENAC SODIUM [Concomitant]
     Dates: start: 20060118

REACTIONS (2)
  - EPIDIDYMITIS TUBERCULOUS [None]
  - SCROTAL ABSCESS [None]
